FAERS Safety Report 20120211 (Version 1)
Quarter: 2021Q4

REPORT INFORMATION
  Report Type: Spontaneous
  Country: DE (occurrence: DE)
  Receive Date: 20211126
  Receipt Date: 20211126
  Transmission Date: 20220303
  Serious: Yes (Hospitalization, Other)
  Sender: FDA-Public Use
  Company Number: None

PATIENT
  Age: 66 Year
  Sex: Male
  Weight: 81 kg

DRUGS (2)
  1. CYKLOKAPRON [Suspect]
     Active Substance: TRANEXAMIC ACID
     Indication: Knee arthroplasty
     Dosage: 800 MG IV
     Route: 042
     Dates: start: 20211105, end: 20211105
  2. CYKLOKAPRON [Suspect]
     Active Substance: TRANEXAMIC ACID
     Indication: Preoperative care

REACTIONS (1)
  - Tonic convulsion [Recovered/Resolved]

NARRATIVE: CASE EVENT DATE: 20211105
